FAERS Safety Report 20435012 (Version 3)
Quarter: 2022Q1

REPORT INFORMATION
  Report Type: Spontaneous
  Country: AU (occurrence: AU)
  Receive Date: 20220206
  Receipt Date: 20220224
  Transmission Date: 20220423
  Serious: Yes (Other)
  Sender: FDA-Public Use
  Company Number: AU-NOVARTISPH-NVSC2022AU024920

PATIENT
  Age: 26 Year
  Sex: Male
  Weight: 55 kg

DRUGS (5)
  1. KYMRIAH [Suspect]
     Active Substance: TISAGENLECLEUCEL
     Indication: Philadelphia positive acute lymphocytic leukaemia
     Dosage: UNK
     Route: 042
     Dates: start: 20210524
  2. FLUDARABINE [Concomitant]
     Active Substance: FLUDARABINE PHOSPHATE
     Indication: Product used for unknown indication
     Dosage: 25 MG/M2, (40 MG) (19TH AND 20TH MAY 2021)
     Route: 042
     Dates: start: 20210519
  3. CYCLOPHOSPHAMIDE [Concomitant]
     Active Substance: CYCLOPHOSPHAMIDE
     Indication: Product used for unknown indication
     Dosage: 250 MG/M2 (410MG (ALSO ON 20 MAY 2021)
     Route: 042
     Dates: start: 20210519
  4. VALACYCLOVIR HYDROCHLORIDE [Concomitant]
     Active Substance: VALACYCLOVIR HYDROCHLORIDE
     Indication: Prophylaxis
     Dosage: 500 MG, BID
     Route: 048
     Dates: start: 20210518
  5. COTRIMOXAZOLE [Concomitant]
     Active Substance: SULFAMETHOXAZOLE\TRIMETHOPRIM
     Indication: Prophylaxis
     Dosage: 800MG/ 160 MG, BID ON MON AND THURS
     Route: 048
     Dates: start: 20210518

REACTIONS (11)
  - Acute lymphocytic leukaemia recurrent [Unknown]
  - Bell^s palsy [Recovered/Resolved]
  - Leukaemic infiltration [Recovered/Resolved]
  - Post-depletion B-cell recovery [Unknown]
  - Thrombocytopenia [Unknown]
  - Condition aggravated [Recovered/Resolved]
  - Liver disorder [Unknown]
  - Minimal residual disease [Unknown]
  - Neuralgia [Recovered/Resolved]
  - Herpes zoster [Recovered/Resolved]
  - Pain [Recovered/Resolved]

NARRATIVE: CASE EVENT DATE: 20210526
